FAERS Safety Report 18362373 (Version 1)
Quarter: 2020Q4

REPORT INFORMATION
  Report Type: Spontaneous
  Country: KR (occurrence: KR)
  Receive Date: 20201009
  Receipt Date: 20201009
  Transmission Date: 20210114
  Serious: Yes (Life-Threatening, Other)
  Sender: FDA-Public Use
  Company Number: KR-SUN PHARMACEUTICAL INDUSTRIES LTD-2020RR-263417

PATIENT
  Age: 18 Year
  Sex: Male

DRUGS (16)
  1. RIFAXIMIN. [Suspect]
     Active Substance: RIFAXIMIN
     Indication: HYPERAMMONAEMIC ENCEPHALOPATHY
     Dosage: UNK
     Route: 065
  2. 5-FLUOROURACIL [Suspect]
     Active Substance: FLUOROURACIL
     Indication: HEPATOCELLULAR CARCINOMA
     Dosage: 400 MILLIGRAM/SQ. METER ON DAYS 1-4
     Route: 065
  3. INTERFERON-ALPHA [Suspect]
     Active Substance: INTERFERON ALFA-2A OR INTERFERON ALFA-2B
     Dosage: UNK
     Route: 065
  4. INTERFERON-ALPHA [Suspect]
     Active Substance: INTERFERON ALFA-2A OR INTERFERON ALFA-2B
     Dosage: TWO ADDITIONAL COURSES, UNK
     Route: 065
  5. CISPLATIN. [Suspect]
     Active Substance: CISPLATIN
     Indication: HEPATOCELLULAR CARCINOMA
     Dosage: 80 MILLIGRAM/SQ. METER ON DAY 1
     Route: 065
  6. DOXORUBICIN [Suspect]
     Active Substance: DOXORUBICIN
     Dosage: TWO ADDITIONAL COURSES, UNK
     Route: 065
  7. 5-FLUOROURACIL [Suspect]
     Active Substance: FLUOROURACIL
     Dosage: UNK
     Route: 065
  8. GEMCITABINE. [Concomitant]
     Active Substance: GEMCITABINE
     Indication: HEPATOCELLULAR CARCINOMA
     Dosage: 1000 MILLIGRAM/SQ. METER ON DAY 1
     Route: 065
  9. CISPLATIN. [Suspect]
     Active Substance: CISPLATIN
     Dosage: UNK
     Route: 065
  10. DOXORUBICIN [Suspect]
     Active Substance: DOXORUBICIN
     Dosage: UNK
     Route: 065
  11. CISPLATIN. [Suspect]
     Active Substance: CISPLATIN
     Dosage: 20 MILLIGRAM/SQ. METER ON DAYS 1-5
     Route: 065
  12. DOXORUBICIN [Suspect]
     Active Substance: DOXORUBICIN
     Indication: HEPATOCELLULAR CARCINOMA
     Dosage: 30 MILLIGRAM/SQ. METER ON DAYS 1 AND 2
     Route: 065
  13. CISPLATIN. [Suspect]
     Active Substance: CISPLATIN
     Dosage: TWO ADDITIONAL COURSES, UNK
     Route: 065
  14. LACTULOSE. [Suspect]
     Active Substance: LACTULOSE
     Indication: HYPERAMMONAEMIC ENCEPHALOPATHY
     Dosage: UNK
     Route: 065
  15. 5-FLUOROURACIL [Suspect]
     Active Substance: FLUOROURACIL
     Dosage: TWO ADDITIONAL COURSES, UNK
     Route: 065
  16. INTERFERON-ALPHA [Suspect]
     Active Substance: INTERFERON ALFA-2A OR INTERFERON ALFA-2B
     Indication: HEPATOCELLULAR CARCINOMA
     Dosage: 5X10^8 U/M2 ON DAYS 1-4
     Route: 065

REACTIONS (2)
  - Drug ineffective [Unknown]
  - Hyperammonaemic encephalopathy [Recovered/Resolved]
